FAERS Safety Report 11867705 (Version 5)
Quarter: 2018Q4

REPORT INFORMATION
  Report Type: Report from Study
  Country: PL (occurrence: PL)
  Receive Date: 20151224
  Receipt Date: 20181012
  Transmission Date: 20190204
  Serious: Yes (Hospitalization)
  Sender: FDA-Public Use
  Company Number: PL-BIOGEN-2015BI050314

PATIENT
  Age: 48 Year
  Sex: Female
  Weight: 85 kg

DRUGS (8)
  1. BACLOFEN. [Concomitant]
     Active Substance: BACLOFEN
     Indication: MUSCLE SPASTICITY
     Route: 048
     Dates: start: 20100315
  2. BG00012 [Suspect]
     Active Substance: DIMETHYL FUMARATE
     Indication: RELAPSING-REMITTING MULTIPLE SCLEROSIS
     Route: 048
     Dates: start: 20140918, end: 20150411
  3. XALATAN [Concomitant]
     Active Substance: LATANOPROST
     Indication: GLAUCOMA
     Route: 031
     Dates: start: 200807
  4. POLPRAZOL [Concomitant]
     Active Substance: OMEPRAZOLE
     Indication: GASTROOESOPHAGEAL REFLUX DISEASE
     Route: 048
     Dates: start: 20100315
  5. BG00012 [Suspect]
     Active Substance: DIMETHYL FUMARATE
     Route: 048
     Dates: start: 20151127
  6. POLFILIN [Concomitant]
     Active Substance: PENTOXIFYLLINE
     Indication: VERTIGO
     Route: 048
     Dates: start: 200801
  7. ASPARGIN [Concomitant]
     Active Substance: ASPARTIC ACID
     Indication: NUTRITIONAL SUPPLEMENTATION
     Route: 048
     Dates: start: 20100315
  8. RANIGAST [Concomitant]
     Indication: GASTROOESOPHAGEAL REFLUX DISEASE
     Route: 048
     Dates: start: 20100315

REACTIONS (1)
  - Infectious pleural effusion [Recovered/Resolved]

NARRATIVE: CASE EVENT DATE: 20150308
